FAERS Safety Report 9507175 (Version 2)
Quarter: 2014Q1

REPORT INFORMATION
  Report Type: Spontaneous
  Country: US (occurrence: None)
  Receive Date: 20130305
  Receipt Date: 20140306
  Transmission Date: 20141002
  Serious: Yes (Other)
  Sender: FDA-Public Use
  Company Number: 163-21880-12113910

PATIENT
  Age: 79 Year
  Sex: Female
  Weight: 75.3 kg

DRUGS (1)
  1. REVLIMID [Suspect]
     Indication: PLASMA CELL MYELOMA
     Dosage: 5 MG, 28 IN 28 D, PO
     Route: 048
     Dates: start: 20121018

REACTIONS (5)
  - Musculoskeletal stiffness [None]
  - Neuropathy peripheral [None]
  - Fatigue [None]
  - Drug dose omission [None]
  - Fatigue [None]
